FAERS Safety Report 12762936 (Version 1)
Quarter: 2016Q3

REPORT INFORMATION
  Report Type: Spontaneous
  Country: US (occurrence: US)
  Receive Date: 20160915
  Receipt Date: 20160915
  Transmission Date: 20161109
  Serious: No
  Sender: FDA-Public Use
  Company Number: None

PATIENT
  Age: 41 Year
  Sex: Male

DRUGS (1)
  1. DAPTOMYCIN 350MG BAXTER PHARMACEUTICALS [Suspect]
     Active Substance: DAPTOMYCIN
     Indication: OSTEOMYELITIS
     Dosage: 6MG/KG Q 24 HOURS IV
     Route: 042
     Dates: start: 20160805, end: 20160805

REACTIONS (3)
  - Swollen tongue [None]
  - Pharyngeal oedema [None]
  - Erythema [None]

NARRATIVE: CASE EVENT DATE: 20160805
